FAERS Safety Report 20229667 (Version 1)
Quarter: 2021Q4

REPORT INFORMATION
  Report Type: Other
  Country: GR (occurrence: GR)
  Receive Date: 20211226
  Receipt Date: 20211226
  Transmission Date: 20220304
  Serious: Yes (Life-Threatening)
  Sender: FDA-Public Use
  Company Number: GR-CELLTRION HEALTHCARE HUNGARY KFT-2021GR017308

PATIENT

DRUGS (3)
  1. RITUXIMAB [Suspect]
     Active Substance: RITUXIMAB
     Indication: Rheumatic disorder
     Route: 065
  2. MYCOPHENOLATE MOFETIL [Suspect]
     Active Substance: MYCOPHENOLATE MOFETIL
     Indication: Rheumatic disorder
     Route: 065
  3. METHYLPREDNISOLONE [Suspect]
     Active Substance: METHYLPREDNISOLONE
     Indication: Rheumatic disorder
     Route: 065

REACTIONS (1)
  - COVID-19 [Unknown]
